FAERS Safety Report 16075227 (Version 2)
Quarter: 2019Q1

REPORT INFORMATION
  Report Type: Report from Study
  Country: KR (occurrence: KR)
  Receive Date: 20190315
  Receipt Date: 20190322
  Transmission Date: 20190418
  Serious: Yes (Other)
  Sender: FDA-Public Use
  Company Number: KR-ROCHE-2282882

PATIENT
  Age: 54 Year
  Sex: Male
  Weight: 90 kg

DRUGS (2)
  1. COBIMETINIB. [Suspect]
     Active Substance: COBIMETINIB
     Indication: SALIVARY GLAND CANCER
     Route: 048
     Dates: start: 20180226, end: 20190305
  2. HM95573 (RAF KINASE INHIBITOR) [Suspect]
     Active Substance: INVESTIGATIONAL PRODUCT
     Indication: SALIVARY GLAND CANCER
     Route: 048
     Dates: start: 20180226, end: 20190305

REACTIONS (2)
  - MEK inhibitor-associated serous retinopathy [Recovered/Resolved]
  - Chorioretinopathy [Recovered/Resolved]

NARRATIVE: CASE EVENT DATE: 20190302
